FAERS Safety Report 11172336 (Version 2)
Quarter: 2015Q3

REPORT INFORMATION
  Report Type: Spontaneous
  Country: US (occurrence: US)
  Receive Date: 20150608
  Receipt Date: 20150818
  Transmission Date: 20151125
  Serious: Yes (Other)
  Sender: FDA-Public Use
  Company Number: US-PFIZER INC-2015188028

PATIENT
  Age: 49 Year
  Sex: Female

DRUGS (18)
  1. ALPRAZOLAM. [Concomitant]
     Active Substance: ALPRAZOLAM
     Dosage: 0.5 MG, 3X/DAY
     Route: 048
  2. FOLIC ACID. [Concomitant]
     Active Substance: FOLIC ACID
     Dosage: 1 MG, DAILY
     Route: 048
  3. PROAIR HFA [Concomitant]
     Active Substance: ALBUTEROL SULFATE
     Indication: ASTHMA
     Dosage: 108 ?G, AS NEEDED 1-2 PUFFS EVERY4-6 HOURS AS NEEDED)
  4. VALTREX [Concomitant]
     Active Substance: VALACYCLOVIR HYDROCHLORIDE
     Dosage: 500 MG, 2X/DAY
     Route: 048
  5. CONCERTA [Concomitant]
     Active Substance: METHYLPHENIDATE HYDROCHLORIDE
     Dosage: 18 MG, 1X/DAY
  6. LYRICA [Suspect]
     Active Substance: PREGABALIN
     Dosage: 150MG ONCE DAILY EACH EVENING
     Route: 048
  7. LYRICA [Suspect]
     Active Substance: PREGABALIN
     Dosage: 100MG ONCE DAILY EACH EVENING
     Route: 048
  8. HYDROCODONE/ACETAMINOPHEN [Concomitant]
     Active Substance: ACETAMINOPHEN\HYDROCODONE
     Indication: PAIN
     Dosage: UNK (HYDROCODONE:10MG, ACETAMINOPHEN: 325MG) (TAKE ONE TABLET UP TO FOUR TIMES DAILY AS NEEDED)
  9. CONCERTA [Concomitant]
     Active Substance: METHYLPHENIDATE HYDROCHLORIDE
     Dosage: 54 MG, 1X/DAY
  10. PROMETHAZINE HCL [Concomitant]
     Active Substance: PROMETHAZINE HYDROCHLORIDE
     Indication: NAUSEA
     Dosage: 12.5 MG, AS NEEDED (TAKE ONE TAB BY MOUTH EVERY 6 HRS IF NEEDED)
     Route: 048
  11. ERGOCALCIFEROL. [Concomitant]
     Active Substance: ERGOCALCIFEROL
     Dosage: 5000 IU, WEEKLY
     Route: 048
  12. LAC-HYDRIN [Concomitant]
     Active Substance: AMMONIUM LACTATE
     Indication: SKIN FISSURES
     Dosage: APPLIED TO CRACKED SKIN TWICE DAILY
     Route: 061
  13. DULOXETINE HCL [Concomitant]
     Active Substance: DULOXETINE HYDROCHLORIDE
     Dosage: 60 MG, DAILY
  14. FLUCONAZOLE. [Concomitant]
     Active Substance: FLUCONAZOLE
     Dosage: 200 MG, DAILY
     Route: 048
  15. CALCIUM CARBONATE AND VITAMIN D [Concomitant]
     Dosage: 1 DF, DAILY (CALCIUM CARBONATE: 600MG, VITAMIN D 400MG)
     Route: 048
  16. METHADONE HCL [Concomitant]
     Active Substance: METHADONE HYDROCHLORIDE
     Dosage: 5 MG, 2X/DAY
     Route: 048
  17. CELEBREX [Suspect]
     Active Substance: CELECOXIB
     Dosage: 200 MG, DAILY
     Route: 048
  18. MIRALAX [Concomitant]
     Active Substance: POLYETHYLENE GLYCOL 3350
     Dosage: DAILY IN 8 OZ WATER

REACTIONS (9)
  - HIV infection [Unknown]
  - Fibromyalgia [Unknown]
  - Back pain [Unknown]
  - Neuralgia [Unknown]
  - Depression [Unknown]
  - Coccydynia [Unknown]
  - Attention deficit/hyperactivity disorder [Unknown]
  - Lipodystrophy acquired [Unknown]
  - Conjunctivitis [Unknown]
